FAERS Safety Report 8616770-2 (Version None)
Quarter: 2012Q3

REPORT INFORMATION
  Report Type: 
  Country: None (occurrence: None)
  Receive Date: 20120823
  Receipt Date: 20120817
  Transmission Date: 20120928
  Serious: Yes (Hospitalization)
  Sender: FDA-Public Use
  Company Number: CA-ABBOTT-12P-028-0940289-00

PATIENT
  Sex: Male

DRUGS (2)
  1. COUMADIN [Concomitant]
     Indication: PULMONARY EMBOLISM
  2. HUMIRA [Suspect]
     Indication: PSORIASIS
     Dosage: ONLY RECEIVED ONE DOSE
     Route: 058
     Dates: start: 20120518

REACTIONS (5)
  - WOUND COMPLICATION [None]
  - CHILLS [None]
  - WOUND SECRETION [None]
  - OEDEMA PERIPHERAL [None]
  - DISCOMFORT [None]
